FAERS Safety Report 16759366 (Version 2)
Quarter: 2020Q4

REPORT INFORMATION
  Report Type: Spontaneous
  Country: CA (occurrence: CA)
  Receive Date: 20190830
  Receipt Date: 20201021
  Transmission Date: 20210113
  Serious: Yes (Other)
  Sender: FDA-Public Use
  Company Number: CA-BEH-2019106131

PATIENT
  Age: 35 Year
  Sex: Female
  Weight: 71 kg

DRUGS (2)
  1. RIASTAP [Suspect]
     Active Substance: FIBRINOGEN HUMAN
     Dosage: 6 GRAM, 0.17G/KG
     Route: 065
  2. RIASTAP [Suspect]
     Active Substance: FIBRINOGEN HUMAN
     Indication: CONGENITAL DYSFIBRINOGENAEMIA
     Dosage: 6 GRAM, 0.17G/KG
     Route: 065

REACTIONS (3)
  - Therapeutic product effect incomplete [Unknown]
  - Thrombophlebitis superficial [Unknown]
  - Exposure during pregnancy [Unknown]
